FAERS Safety Report 5029556-5 (Version None)
Quarter: 2006Q2

REPORT INFORMATION
  Report Type: 
  Country: None (occurrence: None)
  Receive Date: 20060620
  Receipt Date: 20060529
  Transmission Date: 20061013
  Serious: Yes (Other)
  Sender: FDA-Public Use
  Company Number: PHBS2006BR08140

PATIENT
  Age: 40 Year
  Sex: Female
  Weight: 65 kg

DRUGS (17)
  1. RITALIN [Suspect]
     Indication: DEPRESSION
     Dosage: 20 MG, TID
     Route: 048
     Dates: start: 20050101
  2. LUDIOMIL [Concomitant]
     Indication: DEPRESSION
     Dosage: 75 MG/D
     Route: 048
     Dates: start: 20060101
  3. RITALIN LA [Suspect]
     Indication: OBSESSIVE-COMPULSIVE DISORDER
     Dosage: UNK, UNK
     Route: 048
  4. FELDENE [Concomitant]
     Indication: OBSESSIVE-COMPULSIVE DISORDER
  5. RIVOTRIL [Concomitant]
     Indication: DEPRESSION
     Dosage: 8 DRP, QHS
     Route: 048
  6. RIVOTRIL [Concomitant]
     Dosage: 2 MG, QHS
     Route: 048
  7. INIBEX S [Concomitant]
  8. PAROXETINE HYDROCHLORIDE [Concomitant]
     Indication: DEPRESSION
     Dosage: 30 MG/D
     Route: 048
     Dates: start: 19970101, end: 20040101
  9. SEROQUEL [Concomitant]
     Indication: SCHIZOPHRENIA
     Dosage: SOMETIMES
     Route: 065
  10. VENLAFAXINE HCL [Concomitant]
     Indication: OBSESSIVE-COMPULSIVE DISORDER
  11. CYMBALTA [Concomitant]
     Indication: OBSESSIVE-COMPULSIVE DISORDER
  12. CONCERTA [Concomitant]
     Indication: OBSESSIVE-COMPULSIVE DISORDER
     Dosage: 54 MG/D
  13. RISPERIDONE [Concomitant]
     Indication: OBSESSIVE-COMPULSIVE DISORDER
     Dosage: 3 MG/D
  14. CARBOLITHIUM [Concomitant]
     Indication: OBSESSIVE-COMPULSIVE DISORDER
  15. EQUILID [Concomitant]
     Indication: OBSESSIVE-COMPULSIVE DISORDER
     Dosage: 50 MG/D
  16. BUPROPION HYDROCHLORIDE [Concomitant]
     Indication: OBSESSIVE-COMPULSIVE DISORDER
  17. CITALOPRAM HYDROBROMIDE [Concomitant]
     Indication: OBSESSIVE-COMPULSIVE DISORDER

REACTIONS (6)
  - DRUG INEFFECTIVE [None]
  - GASTRIC ULCER [None]
  - GASTRITIS [None]
  - GASTROINTESTINAL DISORDER [None]
  - SOMNOLENCE [None]
  - SURGERY [None]
